FAERS Safety Report 7712913-3 (Version None)
Quarter: 2011Q3

REPORT INFORMATION
  Report Type: 
  Country: None (occurrence: None)
  Receive Date: 20110826
  Receipt Date: 20110817
  Transmission Date: 20111222
  Serious: Yes (Other)
  Sender: FDA-Public Use
  Company Number: PHHY2011GR73607

PATIENT
  Age: 26 Year
  Sex: Male

DRUGS (2)
  1. TESTIM [Concomitant]
  2. EXJADE [Suspect]
     Indication: THALASSAEMIA
     Dosage: 30 MG/KG, UNK
     Dates: start: 20080228, end: 20090701

REACTIONS (3)
  - RENAL COLIC [None]
  - RENAL IMPAIRMENT [None]
  - NEPHROLITHIASIS [None]
